FAERS Safety Report 6195569-3 (Version None)
Quarter: 2009Q2

REPORT INFORMATION
  Report Type: 
  Country: None (occurrence: None)
  Receive Date: 20090519
  Receipt Date: 20090513
  Transmission Date: 20091009
  Serious: Yes (Other)
  Sender: FDA-Public Use
  Company Number: PHHY2009DE16093

PATIENT
  Sex: Female
  Weight: 75 kg

DRUGS (18)
  1. RASILEZ [Suspect]
     Dosage: 150 MG/DAY
     Dates: start: 20090425, end: 20090425
  2. APONAL [Suspect]
     Dosage: 45 MG/DAY
     Dates: start: 20090424, end: 20090425
  3. ZYVOXID [Concomitant]
     Indication: PNEUMONIA
     Dosage: 1200 MG/DAY
     Route: 042
     Dates: start: 20090417, end: 20090427
  4. NEXIUM [Concomitant]
     Indication: PROPHYLAXIS
     Dosage: 20 MG/DAY
     Dates: start: 20090404
  5. HEPARIN [Concomitant]
  6. TPN ELECTROLYTES IN PLASTIC CONTAINER [Concomitant]
  7. DEXTROSE 5% [Concomitant]
     Dosage: 5 %
  8. POTASSIUM CHLORIDE [Concomitant]
  9. NITROGLYCERIN [Concomitant]
  10. PROPOFOL [Concomitant]
  11. SUFENTA PRESERVATIVE FREE [Concomitant]
  12. CLONIDINE HCL [Concomitant]
  13. NULYTELY [Concomitant]
  14. EUTHYROX 75 [Concomitant]
  15. BELOC ZOK [Concomitant]
  16. TOREM 10 [Concomitant]
  17. ENALAPRIL 10 [Concomitant]
  18. NORVASC [Concomitant]

REACTIONS (3)
  - ELECTROCARDIOGRAM QT PROLONGED [None]
  - RESUSCITATION [None]
  - TORSADE DE POINTES [None]
